FAERS Safety Report 8973362 (Version 1)
Quarter: 2012Q4

REPORT INFORMATION
  Report Type: 
  Country: US (occurrence: US)
  Receive Date: 20121218
  Receipt Date: 20121218
  Transmission Date: 20130627
  Serious: No
  Sender: FDA-Public Use
  Company Number: US-BRISTOL-MYERS SQUIBB COMPANY-16942104

PATIENT
  Age: 25 Year
  Sex: Female
  Weight: 54.42 kg

DRUGS (1)
  1. ABILIFY TABS 10 MG [Suspect]

REACTIONS (4)
  - Accidental exposure to product [Unknown]
  - Vomiting [Unknown]
  - Dizziness [Unknown]
  - Nausea [Unknown]
